FAERS Safety Report 12633985 (Version 1)
Quarter: 2016Q3

REPORT INFORMATION
  Report Type: Spontaneous
  Country: US (occurrence: None)
  Receive Date: 20160808
  Receipt Date: 20160808
  Transmission Date: 20161109
  Serious: Yes (Hospitalization)
  Sender: FDA-Public Use
  Company Number: None

PATIENT
  Age: 58 Year
  Sex: Male
  Weight: 82.5 kg

DRUGS (2)
  1. GEMCITABINE HYDROCHLORIDE. [Suspect]
     Active Substance: GEMCITABINE HYDROCHLORIDE
     Dates: end: 20160719
  2. CISPLATIN. [Suspect]
     Active Substance: CISPLATIN
     Dates: end: 20160628

REACTIONS (11)
  - Fatigue [None]
  - Blood culture positive [None]
  - Biliary tract infection [None]
  - Device occlusion [None]
  - Escherichia test positive [None]
  - Pyrexia [None]
  - Vomiting [None]
  - Post procedural complication [None]
  - Hepatic enzyme increased [None]
  - Abdominal pain [None]
  - Nausea [None]

NARRATIVE: CASE EVENT DATE: 20160801
